FAERS Safety Report 18161539 (Version 5)
Quarter: 2020Q4

REPORT INFORMATION
  Report Type: Report from Study
  Country: JP (occurrence: JP)
  Receive Date: 20200818
  Receipt Date: 20201026
  Transmission Date: 20210113
  Serious: Yes (Other)
  Sender: FDA-Public Use
  Company Number: JP-PFIZER INC-2020309123

PATIENT
  Age: 70 Year
  Sex: Female
  Weight: 60.4 kg

DRUGS (3)
  1. TRASTUZUMAB. [Suspect]
     Active Substance: TRASTUZUMAB
     Indication: EXTRAMAMMARY PAGET^S DISEASE
     Dosage: 4 MG/KG, CYCLIC: FOLLOWED BY 2 MG/DAY, DAY 1, 5,15
  2. TRASTUZUMAB. [Suspect]
     Active Substance: TRASTUZUMAB
     Dosage: 4 MG/KG LOADING DOSE
     Route: 042
  3. PACLITAXEL. [Suspect]
     Active Substance: PACLITAXEL
     Indication: EXTRAMAMMARY PAGET^S DISEASE
     Dosage: 80 MG/M2, CYCLIC: DAY 1,8,15 EVERY 4 WEEK

REACTIONS (6)
  - Platelet count decreased [Unknown]
  - Cardiotoxicity [Unknown]
  - Ejection fraction decreased [Unknown]
  - Leukopenia [Unknown]
  - Neutropenia [Unknown]
  - Haematotoxicity [Unknown]
